FAERS Safety Report 11807625 (Version 2)
Quarter: 2015Q4

REPORT INFORMATION
  Report Type: Spontaneous
  Country: US (occurrence: US)
  Receive Date: 20151207
  Receipt Date: 20151223
  Transmission Date: 20160305
  Serious: Yes (Death, Other)
  Sender: FDA-Public Use
  Company Number: US-009507513-1512USA001870

PATIENT
  Age: 58 Year
  Sex: Male

DRUGS (1)
  1. KEYTRUDA [Suspect]
     Active Substance: PEMBROLIZUMAB
     Dosage: RECEIVED ONE TREATMET; THERAPY ROUTE:INFUSION

REACTIONS (3)
  - Malaise [Unknown]
  - Death [Fatal]
  - Neoplasm malignant [Unknown]

NARRATIVE: CASE EVENT DATE: 2015
